FAERS Safety Report 7271911-7 (Version None)
Quarter: 2011Q1

REPORT INFORMATION
  Report Type: 
  Country: None (occurrence: None)
  Receive Date: 20110131
  Receipt Date: 20110131
  Transmission Date: 20110831
  Serious: Yes (Life-Threatening)
  Sender: FDA-Public Use
  Company Number: None

PATIENT
  Age: 59 Year
  Sex: Female

DRUGS (1)
  1. NUBAIN [Suspect]
     Dosage: 10 MG DOSE ONCE
     Dates: start: 20100922

REACTIONS (6)
  - RESTLESSNESS [None]
  - DEPRESSED LEVEL OF CONSCIOUSNESS [None]
  - BODY TEMPERATURE DECREASED [None]
  - MYOCLONUS [None]
  - HYPERHIDROSIS [None]
  - WITHDRAWAL SYNDROME [None]
